FAERS Safety Report 13678716 (Version 1)
Quarter: 2017Q2

REPORT INFORMATION
  Report Type: Spontaneous
  Country: US (occurrence: US)
  Receive Date: 20170622
  Receipt Date: 20170622
  Transmission Date: 20170830
  Serious: No
  Sender: FDA-Public Use
  Company Number: US-SA-2017SA060078

PATIENT
  Age: 13 Year
  Sex: Female
  Weight: 68.94 kg

DRUGS (1)
  1. CEREZYME [Suspect]
     Active Substance: IMIGLUCERASE
     Dosage: DOSE:58.02 UNIT(S)/KILOGRAM BODYWEIGHT
     Route: 042
     Dates: start: 20160215

REACTIONS (1)
  - Abdominal discomfort [Unknown]
